FAERS Safety Report 11679738 (Version 3)
Quarter: 2015Q4

REPORT INFORMATION
  Report Type: Spontaneous
  Country: US (occurrence: US)
  Receive Date: 20151027
  Receipt Date: 20151110
  Transmission Date: 20160304
  Serious: No
  Sender: FDA-Public Use
  Company Number: US-ELI_LILLY_AND_COMPANY-US201004008410

PATIENT
  Age: 70 Year
  Sex: Female

DRUGS (14)
  1. FORTEO [Suspect]
     Active Substance: TERIPARATIDE
     Dosage: 20 UG, QD
  2. METFORMIN [Concomitant]
     Active Substance: METFORMIN HYDROCHLORIDE
  3. FORTEO [Suspect]
     Active Substance: TERIPARATIDE
     Dosage: 20 UG, QD
  4. FORTEO [Suspect]
     Active Substance: TERIPARATIDE
     Dosage: 20 UG, QD
  5. NEXIUM [Concomitant]
     Active Substance: ESOMEPRAZOLE MAGNESIUM
  6. FORTEO [Suspect]
     Active Substance: TERIPARATIDE
     Dosage: 20 UG, QD
  7. FORTEO [Suspect]
     Active Substance: TERIPARATIDE
     Indication: OSTEOPOROSIS
     Dosage: 20 UG, QD
     Dates: start: 201003
  8. FORTEO [Suspect]
     Active Substance: TERIPARATIDE
     Dosage: 20 UG, QD
  9. FORTEO [Suspect]
     Active Substance: TERIPARATIDE
     Dosage: 20 UG, QD
  10. PRILOSEC [Concomitant]
     Active Substance: OMEPRAZOLE MAGNESIUM
  11. FORTEO [Suspect]
     Active Substance: TERIPARATIDE
     Dosage: 20 UG, QD
  12. FORTEO [Suspect]
     Active Substance: TERIPARATIDE
     Dosage: 20 UG, QD
  13. ANESTHETICS [Concomitant]
     Active Substance: UNSPECIFIED INGREDIENT
     Indication: COLONOSCOPY
     Dates: start: 20100930, end: 20100930
  14. ALLEGRA [Concomitant]
     Active Substance: FEXOFENADINE HYDROCHLORIDE

REACTIONS (23)
  - Pain in extremity [Unknown]
  - Paranasal sinus hypersecretion [Recovering/Resolving]
  - Terminal insomnia [Unknown]
  - Hypokinesia [Unknown]
  - Dysphonia [Unknown]
  - Productive cough [Unknown]
  - Feeling cold [Unknown]
  - Injection site erythema [Unknown]
  - Body height decreased [Unknown]
  - Insomnia [Unknown]
  - Injection site pain [Not Recovered/Not Resolved]
  - Rash macular [Unknown]
  - Cough [Unknown]
  - Nasopharyngitis [Recovering/Resolving]
  - Sinusitis [Recovered/Resolved]
  - Nasopharyngitis [Unknown]
  - Throat irritation [Unknown]
  - Drug dose omission [Recovered/Resolved]
  - Rhinorrhoea [Recovering/Resolving]
  - Sinus congestion [Recovering/Resolving]
  - Somnolence [Unknown]
  - Injection site haemorrhage [Unknown]
  - Fatigue [Unknown]

NARRATIVE: CASE EVENT DATE: 20100426
